FAERS Safety Report 4311770-5 (Version None)
Quarter: 2004Q1

REPORT INFORMATION
  Report Type: 
  Country: None (occurrence: None)
  Receive Date: 20040304
  Receipt Date: 20040304
  Transmission Date: 20041129
  Serious: Yes (Other)
  Sender: FDA-Public Use
  Company Number: None

PATIENT
  Age: 50 Year
  Sex: Female
  Weight: 75.7507 kg

DRUGS (5)
  1. DIFLUCAN [Suspect]
     Indication: FUNGAL INFECTION
     Dosage: 200 MG BID NASAL
     Route: 045
     Dates: start: 20031127, end: 20031130
  2. DIFLUCAN [Suspect]
     Indication: SINUSITIS
     Dosage: 200 MG BID NASAL
     Route: 045
     Dates: start: 20031127, end: 20031130
  3. ALBUTEROL [Concomitant]
  4. METHYLPREDNISOLONE [Concomitant]
  5. ALLEGRA [Concomitant]

REACTIONS (5)
  - HEADACHE [None]
  - INFLUENZA LIKE ILLNESS [None]
  - MALAISE [None]
  - RASH [None]
  - SINUSITIS [None]
